FAERS Safety Report 25998729 (Version 2)
Quarter: 2025Q4

REPORT INFORMATION
  Report Type: Spontaneous
  Country: US (occurrence: None)
  Receive Date: 20251105
  Receipt Date: 20251217
  Transmission Date: 20260117
  Serious: No
  Sender: APOTEX
  Company Number: US-APOTEX-2025AP031281

PATIENT
  Sex: Female

DRUGS (1)
  1. AZELASTINE [4]
     Active Substance: AZELASTINE
     Indication: Product used for unknown indication
     Dosage: 4 DOSAGE FORM, BID (2 SPRAY IN EACH NOSTRIL TWICE DAILY)

REACTIONS (2)
  - Product dose omission issue [Unknown]
  - Wrong technique in device usage process [Unknown]

NARRATIVE: CASE EVENT DATE: 20251013
